FAERS Safety Report 5814599-1 (Version None)
Quarter: 2008Q3

REPORT INFORMATION
  Report Type: 
  Country: None (occurrence: None)
  Receive Date: 20080718
  Receipt Date: 20071108
  Transmission Date: 20090109
  Serious: No
  Sender: FDA-Public Use
  Company Number: US-KINGPHARMUSA00001-K200701448

PATIENT

DRUGS (3)
  1. LEVOXYL [Suspect]
     Indication: GOITRE
     Dosage: 112 MCG, QD
     Route: 048
     Dates: start: 20020101
  2. ESTROGEN NOS [Concomitant]
     Dosage: .5 MG, QD
     Route: 048
  3. WELLBUTRIN [Concomitant]
     Indication: DEATH OF RELATIVE
     Dosage: UNK, QD
     Route: 048
     Dates: end: 20071001

REACTIONS (5)
  - ALLERGY TO CHEMICALS [None]
  - CHEMICAL BURN OF SKIN [None]
  - DYSPNOEA [None]
  - HYPERSENSITIVITY [None]
  - PRURITUS [None]
